FAERS Safety Report 6878929-4 (Version None)
Quarter: 2010Q3

REPORT INFORMATION
  Report Type: 
  Country: None (occurrence: None)
  Receive Date: 20100728
  Receipt Date: 20100720
  Transmission Date: 20110219
  Serious: Yes (Hospitalization)
  Sender: FDA-Public Use
  Company Number: JP-BAYER-201013676BYL

PATIENT
  Sex: Female

DRUGS (1)
  1. NEXAVAR [Suspect]
     Indication: ACUTE MYELOID LEUKAEMIA
     Dosage: TOTAL DAILY DOSE: 50 MG  UNIT DOSE: 200 MG
     Route: 048
     Dates: start: 20100621, end: 20100621

REACTIONS (2)
  - DISSEMINATED INTRAVASCULAR COAGULATION [None]
  - SCIATICA [None]
